FAERS Safety Report 25089512 (Version 1)
Quarter: 2025Q1

REPORT INFORMATION
  Report Type: Spontaneous
  Country: US (occurrence: US)
  Receive Date: 20250318
  Receipt Date: 20250318
  Transmission Date: 20250408
  Serious: No
  Sender: ITALFARMACO SPA
  Company Number: US-ITALFARMACO SPA-2173129

PATIENT
  Age: 32 Year
  Sex: Male
  Weight: 49.9 kg

DRUGS (7)
  1. DUVYZAT [Suspect]
     Active Substance: GIVINOSTAT
     Indication: Duchenne muscular dystrophy
     Dates: start: 20250220
  2. METOPROLOL TARTRATE [Concomitant]
     Active Substance: METOPROLOL TARTRATE
  3. VITAMIN B12 [Concomitant]
     Active Substance: CYANOCOBALAMIN
  4. ZOFRAN [Concomitant]
     Active Substance: ONDANSETRON HYDROCHLORIDE
  5. DULOXETINE [Concomitant]
     Active Substance: DULOXETINE
  6. OMEPRAZOLE [Concomitant]
     Active Substance: OMEPRAZOLE
  7. ENTRESTO [Concomitant]
     Active Substance: SACUBITRIL\VALSARTAN

REACTIONS (3)
  - Decreased appetite [Unknown]
  - Mastication disorder [Unknown]
  - Ageusia [Unknown]
